FAERS Safety Report 20118167 (Version 1)
Quarter: 2021Q4

REPORT INFORMATION
  Report Type: Spontaneous
  Country: US (occurrence: None)
  Receive Date: 20211123
  Receipt Date: 20211123
  Transmission Date: 20220303
  Serious: No
  Sender: FDA-Public Use
  Company Number: None

PATIENT

DRUGS (2)
  1. NOREPINEPHRINE BITARTRATE [Suspect]
     Active Substance: NOREPINEPHRINE BITARTRATE
  2. FENTANYL [Suspect]
     Active Substance: FENTANYL

REACTIONS (4)
  - Hypotension [None]
  - Device programming error [None]
  - Incorrect dose administered [None]
  - Incorrect drug administration rate [None]
